FAERS Safety Report 9041853 (Version 1)
Quarter: 2013Q1

REPORT INFORMATION
  Report Type: Report from Study
  Country: US (occurrence: US)
  Receive Date: 20130129
  Receipt Date: 20130129
  Transmission Date: 20140127
  Serious: No
  Sender: FDA-Public Use
  Company Number: US-ABBOTT-12P-163-0904529-00

PATIENT
  Age: 28 Year
  Sex: Male

DRUGS (10)
  1. HUMIRA 40 MG/0.8 ML PEN [Suspect]
     Indication: CROHN^S DISEASE
     Dosage: LOADING DOSE
     Dates: start: 20120203
  2. POTASSIUM [Concomitant]
     Indication: SUPPLEMENTATION THERAPY
     Dosage: 20 MEQ DAILY
  3. 6-MP [Concomitant]
     Indication: CROHN^S DISEASE
  4. METHADONE [Concomitant]
     Indication: PAIN
  5. METHADONE [Concomitant]
     Indication: ADHESION
  6. GEMFIBROZIL [Concomitant]
     Indication: PRODUCT USED FOR UNKNOWN INDICATION
     Dosage: 600 MG DAILY
  7. VYTORIN [Concomitant]
     Indication: BLOOD CHOLESTEROL
     Dosage: 10/80 DAILY
  8. ALENDRONATE SODIUM [Concomitant]
     Indication: OSTEOPOROSIS PROPHYLAXIS
  9. B12 [Concomitant]
     Indication: PRODUCT USED FOR UNKNOWN INDICATION
     Dosage: TWO INJECTABLE MEDICATIONS MONTHLY
     Route: 050
  10. TESTOSTERONE [Concomitant]
     Indication: PRODUCT USED FOR UNKNOWN INDICATION
     Dosage: TWO INJECTABLE MEDICATIONS MONTHLY
     Route: 050

REACTIONS (5)
  - Headache [Recovering/Resolving]
  - Anxiety [Recovering/Resolving]
  - Joint stiffness [Recovered/Resolved]
  - Epistaxis [Recovering/Resolving]
  - Muscle spasms [Recovering/Resolving]
